FAERS Safety Report 8330008-5 (Version None)
Quarter: 2012Q2

REPORT INFORMATION
  Report Type: 
  Country: None (occurrence: None)
  Receive Date: 20120502
  Receipt Date: 20091217
  Transmission Date: 20120825
  Serious: No
  Sender: FDA-Public Use
  Company Number: US-TEVA-2009029725

PATIENT
  Sex: Male
  Weight: 122.58 kg

DRUGS (11)
  1. ANDROGEL [Concomitant]
     Dates: start: 20090601
  2. FOLIC ACID [Concomitant]
     Dates: start: 20090601
  3. NUVIGIL [Suspect]
     Indication: SLEEP APNOEA SYNDROME
     Dosage: 150 MILLIGRAM;
     Route: 048
     Dates: start: 20091203
  4. PLAVIX [Concomitant]
     Dates: start: 20000101
  5. AZOR [Concomitant]
     Indication: BLOOD PRESSURE INCREASED
     Dates: start: 20090101
  6. LEXAPRO [Concomitant]
     Dates: start: 20090101
  7. WELCHOL [Concomitant]
     Dates: start: 20090101
  8. NIACIN [Concomitant]
     Indication: BLOOD CHOLESTEROL INCREASED
     Dates: start: 20000101
  9. OMEGA 3 FATTY ACID [Concomitant]
     Dates: start: 20090601
  10. ASPIRIN [Concomitant]
  11. VITAMINS AND SUPPLEMENTS [Concomitant]
     Dates: start: 20090601

REACTIONS (3)
  - DRUG TOLERANCE [None]
  - INSOMNIA [None]
  - ABNORMAL DREAMS [None]
